APPROVED DRUG PRODUCT: VANCOMYCIN HYDROCHLORIDE
Active Ingredient: VANCOMYCIN HYDROCHLORIDE
Strength: EQ 10GM BASE/VIAL
Dosage Form/Route: INJECTABLE;INJECTION
Application: A202464 | Product #001
Applicant: AVET LIFESCIENCES LTD
Approved: Oct 9, 2013 | RLD: No | RS: No | Type: DISCN